FAERS Safety Report 21804663 (Version 1)
Quarter: 2023Q1

REPORT INFORMATION
  Report Type: Spontaneous
  Country: CN (occurrence: CN)
  Receive Date: 20230102
  Receipt Date: 20230102
  Transmission Date: 20230418
  Serious: Yes (Other)
  Sender: FDA-Public Use
  Company Number: CN-002147023-NVSC2022CN300702

PATIENT
  Age: 40 Year
  Sex: Female
  Weight: 76 kg

DRUGS (1)
  1. PAZOPANIB [Suspect]
     Active Substance: PAZOPANIB
     Indication: Sarcomatoid carcinoma of the lung
     Dosage: 800 MG, QD
     Route: 048
     Dates: start: 20220112, end: 20221107

REACTIONS (2)
  - Pneumothorax [Recovering/Resolving]
  - Product use in unapproved indication [Unknown]

NARRATIVE: CASE EVENT DATE: 20220112
